FAERS Safety Report 6080120-9 (Version None)
Quarter: 2009Q1

REPORT INFORMATION
  Report Type: 
  Country: None (occurrence: None)
  Receive Date: 20090217
  Receipt Date: 20090205
  Transmission Date: 20090719
  Serious: Yes (Other)
  Sender: FDA-Public Use
  Company Number: US-WYE-H07651909

PATIENT
  Sex: Female
  Weight: 77.18 kg

DRUGS (7)
  1. PRISTIQ [Suspect]
     Indication: MAJOR DEPRESSION
     Route: 048
     Dates: start: 20090104, end: 20090101
  2. PRISTIQ [Suspect]
     Indication: BIPOLAR DISORDER
     Route: 048
     Dates: start: 20090101
  3. RIFAXIMIN [Concomitant]
  4. HYDROCHLOROTHIAZIDE [Concomitant]
  5. AMLODIPINE [Concomitant]
  6. SULFASALAZINE [Concomitant]
  7. AZATHIOPRINE [Concomitant]

REACTIONS (4)
  - AMNESIA [None]
  - HYPOTENSION [None]
  - INTRAOCULAR PRESSURE INCREASED [None]
  - MEDICATION RESIDUE [None]
